FAERS Safety Report 8893394 (Version 2)
Quarter: 2012Q4

REPORT INFORMATION
  Report Type: 
  Country: FR (occurrence: FR)
  Receive Date: 20121108
  Receipt Date: 20121114
  Transmission Date: 20130627
  Serious: Yes (Death, Other)
  Sender: FDA-Public Use
  Company Number: PHHY2012FR101732

PATIENT
  Age: 71 None
  Sex: Female
  Weight: 50 kg

DRUGS (21)
  1. NEORAL [Suspect]
     Indication: RENAL TRANSPLANT
     Dosage: 200 mg, QD
     Dates: start: 20110928, end: 201202
  2. PLAQUENIL [Suspect]
     Indication: RENAL TRANSPLANT
     Dosage: 400 mg, QD
     Dates: start: 19880101
  3. MYFORTIC [Concomitant]
     Indication: RENAL TRANSPLANT
     Dosage: 720 mg, QD
     Dates: start: 20110928
  4. MYFORTIC [Concomitant]
     Dosage: 540 mg, QD
     Dates: start: 201202
  5. MYFORTIC [Concomitant]
     Dosage: 180 mg, QD
  6. TARDYFERON [Concomitant]
  7. CYSTINE [Concomitant]
  8. CORTICOSTEROIDS [Concomitant]
     Indication: SYSTEMIC LUPUS ERYTHEMATOSUS
     Dates: start: 1987, end: 1988
  9. EUROBIOL [Concomitant]
     Indication: PANCREATITIS CHRONIC
  10. PREDNISONE [Concomitant]
     Indication: RENAL TRANSPLANT
  11. ZOLOFT (SERTRALINE) [Concomitant]
     Indication: RENAL TRANSPLANT
     Dosage: 50 mg, QD
  12. LASILIX [Concomitant]
     Indication: RENAL TRANSPLANT
     Dosage: 20-40 mg daily
  13. BACTRIM [Concomitant]
     Indication: RENAL TRANSPLANT
     Dosage: 400 mg, QD
  14. CRESTOR [Concomitant]
     Indication: RENAL TRANSPLANT
  15. TAHOR [Concomitant]
  16. INEXIUM//ESOMEPRAZOLE MAGNESIUM [Concomitant]
     Indication: RENAL TRANSPLANT
     Dosage: 20 mg, QD
  17. KARDEGIC [Concomitant]
     Indication: RENAL TRANSPLANT
     Dosage: 75 mg, QD
  18. ARANESP [Concomitant]
     Indication: RENAL TRANSPLANT
     Dosage: 100 mg, QMO
  19. AMLODIPINE [Concomitant]
     Indication: RENAL TRANSPLANT
  20. PROGRAF [Concomitant]
     Dosage: 4 mg, QD
     Dates: start: 201204
  21. CARDENSIEL [Concomitant]
     Dosage: 1.25 mg, QD
     Dates: start: 201204

REACTIONS (13)
  - Intestinal ischaemia [Fatal]
  - Cardio-respiratory arrest [Fatal]
  - Cardiogenic shock [Fatal]
  - Atrioventricular block [Fatal]
  - Cardiac failure congestive [Unknown]
  - Ventricular hypokinesia [Unknown]
  - Ejection fraction decreased [Unknown]
  - Myocarditis [Recovered/Resolved]
  - Pericardial effusion [Unknown]
  - Dyspnoea exertional [Unknown]
  - Multi-organ failure [Unknown]
  - Kidney transplant rejection [Unknown]
  - BK virus infection [Unknown]
